FAERS Safety Report 9004400 (Version 1)
Quarter: 2013Q1

REPORT INFORMATION
  Report Type: Spontaneous
  Country: US (occurrence: None)
  Receive Date: 20130104
  Receipt Date: 20130104
  Transmission Date: 20140127
  Serious: Yes (Other)
  Sender: FDA-Public Use
  Company Number: None

PATIENT
  Sex: Male
  Weight: 79.38 kg

DRUGS (3)
  1. TRIAMTERENE + HYDROCHLOROTHIAZIDE [Suspect]
     Indication: HYPERTENSION
     Dosage: 37.5/25 TAB ONCE DAILY ORAL
     Route: 048
     Dates: start: 201202, end: 201212
  2. ATENOLOL [Concomitant]
  3. AMOLDOPINE [Concomitant]

REACTIONS (4)
  - Rash [None]
  - Pruritus [None]
  - Pain [None]
  - Product formulation issue [None]
